FAERS Safety Report 4742855-7 (Version None)
Quarter: 2005Q3

REPORT INFORMATION
  Report Type: 
  Country: None (occurrence: None)
  Receive Date: 20050811
  Receipt Date: 20050529
  Transmission Date: 20060218
  Serious: Yes (Hospitalization, Disabling, Other)
  Sender: FDA-Public Use
  Company Number: 2005CG01023

PATIENT
  Age: 19192 Day
  Sex: Female
  Weight: 42.5 kg

DRUGS (3)
  1. CRESTOR [Suspect]
     Route: 048
     Dates: start: 20050201, end: 20050318
  2. SOLU-MEDROL [Suspect]
     Indication: SINUSITIS
     Route: 048
     Dates: start: 20050225, end: 20050228
  3. PYOSTACINE [Suspect]
     Indication: SINUSITIS
     Route: 048
     Dates: start: 20050225, end: 20050306

REACTIONS (3)
  - HEPATITIS [None]
  - PANCREATITIS [None]
  - SINUSITIS [None]
